FAERS Safety Report 8828985 (Version 1)
Quarter: 2012Q4

REPORT INFORMATION
  Report Type: 
  Country: US (occurrence: US)
  Receive Date: 20121008
  Receipt Date: 20121008
  Transmission Date: 20130627
  Serious: Yes (Hospitalization)
  Sender: FDA-Public Use
  Company Number: US-B.I. PHARMACEUTICALS,INC./RIDGEFIELD-2012-EU-05016GD

PATIENT
  Age: 76 Year
  Sex: Male

DRUGS (8)
  1. PRADAXA [Suspect]
     Indication: ATRIAL FIBRILLATION
  2. ASPIRIN [Suspect]
     Indication: THROMBOSIS IN DEVICE
  3. PLAVIX [Suspect]
     Indication: THROMBOSIS IN DEVICE
  4. DIGOXIN [Concomitant]
  5. SIMVASTATIN [Concomitant]
  6. JANUVIA [Concomitant]
  7. ATENOLOL [Concomitant]
  8. METFORMIN [Concomitant]

REACTIONS (6)
  - Conjunctival haemorrhage [Recovered/Resolved]
  - Conjunctival oedema [Unknown]
  - Conjunctival oedema [Unknown]
  - Conjunctival haemorrhage [Unknown]
  - Eye movement disorder [Unknown]
  - Conjunctival haemorrhage [Unknown]
